FAERS Safety Report 5600559-2 (Version None)
Quarter: 2008Q1

REPORT INFORMATION
  Report Type: 
  Country: None (occurrence: None)
  Receive Date: 20080123
  Receipt Date: 20080122
  Transmission Date: 20080703
  Serious: Yes (Life-Threatening, Hospitalization, Disabling, Congenital Anomaly)
  Sender: FDA-Public Use
  Company Number: GB-BOEHRINGER INGELHEIM PHARMACEUTICALS, INC.-2006-UK-03652UK

PATIENT
  Age: 18 Month
  Sex: Female

DRUGS (2)
  1. VIRAMUNE [Suspect]
     Indication: RETROVIRAL INFECTION
     Route: 015
     Dates: start: 20040116
  2. COMBIVIR [Suspect]
     Indication: RETROVIRAL INFECTION
     Dosage: 1 DF
     Route: 015
     Dates: start: 20040116

REACTIONS (1)
  - RETINOBLASTOMA BILATERAL [None]
